FAERS Safety Report 4632782-8 (Version None)
Quarter: 2005Q2

REPORT INFORMATION
  Report Type: 
  Country: None (occurrence: None)
  Receive Date: 20050412
  Receipt Date: 20050107
  Transmission Date: 20051028
  Serious: Yes (Hospitalization)
  Sender: FDA-Public Use
  Company Number: PHFR2005GB00505

PATIENT
  Age: 45 Year
  Sex: Male

DRUGS (4)
  1. AMISULPRIDE [Concomitant]
     Indication: SCHIZOPHRENIA
     Dosage: 600MG/DAY
  2. PRAVASTATIN [Concomitant]
     Indication: HYPERLIPIDAEMIA
     Route: 048
  3. BENDROFLUAZIDE [Concomitant]
     Indication: HYPERTENSION
     Dosage: 2.5MG/DAY
     Route: 048
  4. CLOZARIL [Suspect]
     Indication: SCHIZOPHRENIA
     Dosage: 700 MG/DAY
     Route: 048
     Dates: start: 20000405

REACTIONS (5)
  - CEREBELLAR INFARCTION [None]
  - HYPERLIPIDAEMIA [None]
  - HYPERTENSION [None]
  - OVERWEIGHT [None]
  - POSTURE ABNORMAL [None]
